FAERS Safety Report 8006871-4 (Version None)
Quarter: 2011Q4

REPORT INFORMATION
  Report Type: 
  Country: None (occurrence: None)
  Receive Date: 20111227
  Receipt Date: 20111216
  Transmission Date: 20120403
  Serious: Yes (Hospitalization, Other)
  Sender: FDA-Public Use
  Company Number: US-BAYER-2011-027782

PATIENT
  Age: 23 Year
  Sex: Female

DRUGS (10)
  1. DROSPIRENONE AND ETHINYL ESTRADIOL [Suspect]
     Indication: CONTRACEPTION
     Dosage: UNK
     Dates: start: 20010101, end: 20050101
  2. OTHER ANTI-ASTHMATICS, INHALANTS [Concomitant]
     Indication: ASTHMA
     Dosage: UNK
     Dates: start: 20030101
  3. CELEXA [Concomitant]
     Indication: ANXIETY
  4. VITAMIN B-12 [Concomitant]
     Indication: ASTHENIA
  5. YAZ [Suspect]
     Indication: CONTRACEPTION
     Dosage: UNK
     Dates: start: 20010101, end: 20050101
  6. LEVOTHYROXINE SODIUM [Concomitant]
     Indication: THYROID DISORDER
     Dosage: UNK UNK, CONT
  7. ORTHO TRI-CYCLEN [Concomitant]
  8. YASMIN [Suspect]
     Indication: CONTRACEPTION
     Dosage: UNK
     Dates: start: 20010101, end: 20050101
  9. IBUPROFEN [Concomitant]
     Indication: MIGRAINE
     Dosage: UNK
     Dates: start: 20060101, end: 20070101
  10. VITAMIN D [Concomitant]

REACTIONS (8)
  - EMOTIONAL DISTRESS [None]
  - GENERAL PHYSICAL HEALTH DETERIORATION [None]
  - PAIN [None]
  - CHOLELITHIASIS [None]
  - GALLBLADDER DISORDER [None]
  - INJURY [None]
  - ANXIETY [None]
  - ANHEDONIA [None]
